FAERS Safety Report 16245416 (Version 1)
Quarter: 2019Q2

REPORT INFORMATION
  Report Type: Spontaneous
  Country: US (occurrence: US)
  Receive Date: 20190426
  Receipt Date: 20190426
  Transmission Date: 20190711
  Serious: No
  Sender: FDA-Public Use
  Company Number: US-TARO-2019TAR00071

PATIENT
  Age: 67 Year
  Sex: Female
  Weight: 52.15 kg

DRUGS (12)
  1. CARBIDOPA/LEVODOPA [Concomitant]
     Active Substance: CARBIDOPA\LEVODOPA
  2. ETODOLAC TABLETS 400 MG [Suspect]
     Active Substance: ETODOLAC
     Indication: BACK PAIN
     Dosage: 400 MG, 1X/DAY
     Dates: start: 20181216
  3. GOCOVRI [Suspect]
     Active Substance: AMANTADINE
     Dosage: 137 MG, 1X/DAY AT BEDTIME
     Route: 048
  4. ETODOLAC TABLETS 400 MG [Suspect]
     Active Substance: ETODOLAC
     Dosage: 400 MG, 1X/DAY
     Dates: start: 20190117, end: 2019
  5. GOCOVRI [Suspect]
     Active Substance: AMANTADINE
     Indication: DYSKINESIA
     Dosage: 137 MG, 1X/DAY AT BEDTIME
     Route: 048
     Dates: start: 20181215, end: 20181228
  6. MULTIVITAMIN [Concomitant]
     Active Substance: VITAMINS
  7. UNSPECIFIED DRUGS FOR BACK PAIN [Concomitant]
  8. GOCOVRI [Suspect]
     Active Substance: AMANTADINE
     Dosage: 274 MG, 1X/DAY AT BEDTIME
     Route: 048
     Dates: start: 20181229
  9. PRAMIPEXOLE. [Concomitant]
     Active Substance: PRAMIPEXOLE
  10. ALENDRONATE [Concomitant]
     Active Substance: ALENDRONATE SODIUM
  11. CALCIUM [Concomitant]
     Active Substance: CALCIUM
  12. TUMERIC [Concomitant]
     Active Substance: HERBALS\TURMERIC

REACTIONS (5)
  - Muscular weakness [Not Recovered/Not Resolved]
  - Pruritus [Recovering/Resolving]
  - Dizziness [Recovered/Resolved]
  - Drug ineffective [Recovered/Resolved]
  - Gait disturbance [Not Recovered/Not Resolved]

NARRATIVE: CASE EVENT DATE: 201812
